FAERS Safety Report 5592298-1 (Version None)
Quarter: 2007Q4

REPORT INFORMATION
  Report Type: 
  Country: None (occurrence: None)
  Receive Date: 20071217
  Receipt Date: 20070927
  Transmission Date: 20080405
  Serious: Yes (Other)
  Sender: FDA-Public Use
  Company Number: BDI-010252

PATIENT
  Age: 65 Year
  Sex: Male

DRUGS (17)
  1. MULTIHANCE [Suspect]
     Indication: ASTHENIA
     Dosage: 17 ML ONCE IV
     Route: 042
     Dates: start: 20070920, end: 20070920
  2. MULTIHANCE [Suspect]
     Indication: MASS
     Dosage: 17 ML ONCE IV
     Route: 042
     Dates: start: 20070920, end: 20070920
  3. MULTIHANCE [Suspect]
     Indication: NASOPHARYNGITIS
     Dosage: 17 ML ONCE IV
     Route: 042
     Dates: start: 20070920, end: 20070920
  4. MULTIHANCE [Suspect]
     Indication: NUCLEAR MAGNETIC RESONANCE IMAGING BRAIN
     Dosage: 17 ML ONCE IV
     Route: 042
     Dates: start: 20070920, end: 20070920
  5. NICOTINE [Concomitant]
  6. MOMETASONE INHALER [Concomitant]
  7. OMEPRAZOLE [Concomitant]
  8. METOPROLOL TARTRATE [Concomitant]
  9. LOVASTATIN [Concomitant]
  10. LISINOPRIL [Concomitant]
  11. PLAVIX [Concomitant]
  12. ASPIRIN [Concomitant]
  13. HYDROCHLOROTHIAZIDE [Concomitant]
  14. XANAX [Concomitant]
  15. TRAMADOL HCL [Concomitant]
  16. ALBUTEROL [Concomitant]
  17. DIPYRIDAMOLE [Concomitant]

REACTIONS (1)
  - HYPERSENSITIVITY [None]
